FAERS Safety Report 6384592-1 (Version None)
Quarter: 2009Q4

REPORT INFORMATION
  Report Type: 
  Country: None (occurrence: None)
  Receive Date: 20091001
  Receipt Date: 20090917
  Transmission Date: 20100525
  Serious: Yes (Other)
  Sender: FDA-Public Use
  Company Number: PHHY2009JP36814

PATIENT
  Age: 77 Year
  Sex: Male

DRUGS (1)
  1. LOCHOL [Suspect]
     Indication: DYSLIPIDAEMIA
     Dosage: 20 MG DAILY
     Route: 048
     Dates: start: 20090824

REACTIONS (1)
  - DYSURIA [None]
